FAERS Safety Report 10619077 (Version 1)
Quarter: 2014Q4

REPORT INFORMATION
  Report Type: Spontaneous
  Country: US (occurrence: None)
  Receive Date: 20141126
  Receipt Date: 20141126
  Transmission Date: 20150529
  Serious: Yes (Hospitalization)
  Sender: FDA-Public Use
  Company Number: AEGR000935

PATIENT
  Age: 49 Year
  Sex: Female
  Weight: 99.3 kg

DRUGS (9)
  1. ASPIRIN. [Concomitant]
     Active Substance: ASPIRIN
  2. ISOSORBIDE MONONITRATE. [Concomitant]
     Active Substance: ISOSORBIDE MONONITRATE
  3. TICLOPIDINE HCL [Concomitant]
     Active Substance: TICLOPIDINE HYDROCHLORIDE
  4. RANEXA [Concomitant]
     Active Substance: RANOLAZINE
  5. FUROSEMIDE. [Concomitant]
     Active Substance: FUROSEMIDE
  6. DILTIAZEM [Concomitant]
     Active Substance: DILTIAZEM
  7. JUXTAPID [Suspect]
     Active Substance: LOMITAPIDE MESYLATE
     Indication: TYPE IIA HYPERLIPIDAEMIA
     Route: 048
     Dates: start: 20140925
  8. CRESTOR [Concomitant]
     Active Substance: ROSUVASTATIN CALCIUM
  9. LOSARTAN [Concomitant]
     Active Substance: LOSARTAN

REACTIONS (1)
  - Thrombosis [None]

NARRATIVE: CASE EVENT DATE: 20141110
